FAERS Safety Report 13670402 (Version 1)
Quarter: 2017Q2

REPORT INFORMATION
  Report Type: Spontaneous
  Country: AU (occurrence: AU)
  Receive Date: 20170620
  Receipt Date: 20170620
  Transmission Date: 20170830
  Serious: Yes (Death)
  Sender: FDA-Public Use
  Company Number: AU-INSYS THERAPEUTICS, INC-INS201706-000376

PATIENT
  Age: 46 Year
  Sex: Male

DRUGS (6)
  1. FENTANYL. [Suspect]
     Active Substance: FENTANYL
     Indication: PRODUCT USED FOR UNKNOWN INDICATION
  2. BENZOYLECGONINE [Suspect]
     Active Substance: BENZOYLECGONINE
  3. HEROIN [Suspect]
     Active Substance: DIAMORPHINE
  4. COCAINE [Suspect]
     Active Substance: COCAINE
  5. AMPHETAMINE [Suspect]
     Active Substance: AMPHETAMINE
  6. TETRAHYDRO CANNABIDIOL [Suspect]
     Active Substance: DRONABINOL

REACTIONS (3)
  - Overdose [Fatal]
  - Drug use disorder [None]
  - Toxicity to various agents [Fatal]

NARRATIVE: CASE EVENT DATE: 201509
